FAERS Safety Report 20359401 (Version 2)
Quarter: 2022Q1

REPORT INFORMATION
  Report Type: Report from Study
  Country: KR (occurrence: KR)
  Receive Date: 20220121
  Receipt Date: 20220214
  Transmission Date: 20220424
  Serious: Yes (Other)
  Sender: FDA-Public Use
  Company Number: KR-AMGEN-KORNI2022008241

PATIENT
  Age: 67 Year
  Sex: Male
  Weight: 66.6 kg

DRUGS (14)
  1. CARFILZOMIB [Suspect]
     Active Substance: CARFILZOMIB
     Indication: Plasma cell myeloma
     Dosage: 45.63 MILLIGRAM
     Route: 042
     Dates: start: 20210915
  2. LENALIDOMIDE [Suspect]
     Active Substance: LENALIDOMIDE
     Indication: Plasma cell myeloma
     Dosage: 460 MILLIGRAM
     Route: 065
     Dates: start: 20211013
  3. DEXAMETHASONE [Suspect]
     Active Substance: DEXAMETHASONE
     Indication: Plasma cell myeloma
     Dosage: 20-40 MILLIGRAM
     Route: 065
     Dates: start: 20220126
  4. EBASTINE\PSEUDOEPHEDRINE HYDROCHLORIDE [Concomitant]
     Active Substance: EBASTINE\PSEUDOEPHEDRINE HYDROCHLORIDE
     Dosage: 1 UNK
     Dates: start: 20210923, end: 20211019
  5. TWOLION [Concomitant]
     Dosage: 1 UNK
     Dates: start: 20210923, end: 20211019
  6. LASIX [Concomitant]
     Active Substance: FUROSEMIDE
     Dosage: 1 UNK
     Dates: start: 20210929, end: 20211012
  7. GRASIN [Concomitant]
     Dosage: 1 UNK
     Dates: start: 20211027, end: 20211201
  8. LYRICA [Concomitant]
     Active Substance: PREGABALIN
     Dosage: 150 MILLIGRAM
     Dates: start: 20210914
  9. ZOYLEX [ACICLOVIR] [Concomitant]
     Dosage: 1 UNK
     Dates: start: 20210915
  10. SULFAMETHOXAZOLE\TRIMETHOPRIM [Concomitant]
     Active Substance: SULFAMETHOXAZOLE\TRIMETHOPRIM
     Dosage: 1 UNK
     Dates: start: 20210915, end: 20211027
  11. LEVOFLOXACIN [Concomitant]
     Active Substance: LEVOFLOXACIN
     Dosage: 1 UNK
     Dates: start: 20210915
  12. ASPIRIN [Concomitant]
     Active Substance: ASPIRIN
     Dosage: 1 UNK
     Dates: start: 20210915
  13. LEVODROPROPIZINE [Concomitant]
     Active Substance: LEVODROPROPIZINE
     Dosage: 1 UNK
     Dates: start: 20210923, end: 20211019
  14. MUCOPECT [Concomitant]
     Dosage: 1 UNK
     Dates: start: 20210923, end: 20211019

REACTIONS (2)
  - Cytopenia [Not Recovered/Not Resolved]
  - Asthenia [Not Recovered/Not Resolved]

NARRATIVE: CASE EVENT DATE: 20211110
